FAERS Safety Report 7679427-0 (Version None)
Quarter: 2011Q3

REPORT INFORMATION
  Report Type: 
  Country: None (occurrence: None)
  Receive Date: 20110812
  Receipt Date: 20110801
  Transmission Date: 20111222
  Serious: Yes (Hospitalization)
  Sender: FDA-Public Use
  Company Number: US-JNJFOC-20100404025

PATIENT
  Sex: Male
  Weight: 37.6 kg

DRUGS (6)
  1. REMICADE [Suspect]
     Dosage: 10TH DOSE
     Route: 042
     Dates: start: 20100119
  2. METRONIDAZOLE [Concomitant]
  3. DRUGS FOR ACID RELATED DISORDERS [Concomitant]
  4. PREDNISONE [Concomitant]
  5. REMICADE [Suspect]
     Indication: CROHN'S DISEASE
     Route: 042
     Dates: start: 20080717
  6. MESALAMINE [Concomitant]

REACTIONS (1)
  - CROHN'S DISEASE [None]
